FAERS Safety Report 15060417 (Version 1)
Quarter: 2018Q2

REPORT INFORMATION
  Report Type: Spontaneous
  Country: US (occurrence: US)
  Receive Date: 20180625
  Receipt Date: 20180625
  Transmission Date: 20180711
  Serious: Yes (Hospitalization)
  Sender: FDA-Public Use
  Company Number: US-JNJFOC-20180516951

PATIENT
  Age: 62 Year
  Sex: Female
  Weight: 58.97 kg

DRUGS (4)
  1. TYLENOL EXTRA STRENGTH [Concomitant]
     Active Substance: ACETAMINOPHEN
     Indication: MALAISE
     Route: 065
  2. BENADRYL ALLERGY ULTRATAB [Suspect]
     Active Substance: DIPHENHYDRAMINE HYDROCHLORIDE
     Indication: MULTIPLE ALLERGIES
     Dosage: JUST ONE TIME A DAY
     Route: 048
     Dates: start: 201804, end: 201805
  3. BENADRYL ALLERGY ULTRATAB [Suspect]
     Active Substance: DIPHENHYDRAMINE HYDROCHLORIDE
     Indication: PROPHYLAXIS
     Dosage: JUST ONE TIME A DAY
     Route: 048
     Dates: start: 201804, end: 201805
  4. EXCEDRIN MIGRAINE [Concomitant]
     Active Substance: ACETAMINOPHEN\ASPIRIN\CAFFEINE
     Indication: HEADACHE
     Route: 065

REACTIONS (15)
  - Dysphagia [Recovering/Resolving]
  - Lacrimation increased [Unknown]
  - Heart rate increased [Recovering/Resolving]
  - Productive cough [Recovering/Resolving]
  - Product use in unapproved indication [Unknown]
  - Hyperhidrosis [Recovering/Resolving]
  - Haemoptysis [Recovering/Resolving]
  - Nasal congestion [Unknown]
  - Aphonia [Recovered/Resolved]
  - Feeling cold [Recovering/Resolving]
  - Headache [Recovering/Resolving]
  - Throat irritation [Recovering/Resolving]
  - Feeling hot [Recovering/Resolving]
  - Eye pruritus [Unknown]
  - Rhinorrhoea [Unknown]

NARRATIVE: CASE EVENT DATE: 201804
